FAERS Safety Report 10502335 (Version 2)
Quarter: 2014Q4

REPORT INFORMATION
  Report Type: Report from Study
  Country: US (occurrence: US)
  Receive Date: 20141007
  Receipt Date: 20141021
  Transmission Date: 20150528
  Serious: Yes (Hospitalization)
  Sender: FDA-Public Use
  Company Number: US-BAYER-2014-144243

PATIENT
  Age: 55 Year
  Sex: Female
  Weight: 62.3 kg

DRUGS (2)
  1. REFAMETINIB [Suspect]
     Active Substance: REFAMETINIB
     Indication: NEOPLASM
     Dosage: 20 MG, BID
     Route: 048
     Dates: start: 20140902
  2. REGORAFENIB [Suspect]
     Active Substance: REGORAFENIB
     Indication: NEOPLASM
     Dosage: 80 MG, QD
     Route: 048
     Dates: start: 20140902

REACTIONS (3)
  - Ejection fraction decreased [Not Recovered/Not Resolved]
  - Hypertension [Recovered/Resolved]
  - Troponin increased [Not Recovered/Not Resolved]

NARRATIVE: CASE EVENT DATE: 20140922
